FAERS Safety Report 7520663-1 (Version None)
Quarter: 2011Q2

REPORT INFORMATION
  Report Type: 
  Country: None (occurrence: None)
  Receive Date: 20110603
  Receipt Date: 20110525
  Transmission Date: 20111010
  Serious: No
  Sender: FDA-Public Use
  Company Number: US-BIOGENIDEC-2011BI019702

PATIENT
  Age: 55 Year
  Sex: Female

DRUGS (1)
  1. AVONEX [Suspect]
     Indication: MULTIPLE SCLEROSIS
     Route: 030
     Dates: start: 20110427

REACTIONS (7)
  - SOMNOLENCE [None]
  - MUSCLE SPASMS [None]
  - INFLUENZA LIKE ILLNESS [None]
  - NAUSEA [None]
  - HEAT EXHAUSTION [None]
  - DYSPHONIA [None]
  - HEADACHE [None]
